FAERS Safety Report 14915824 (Version 1)
Quarter: 2018Q2

REPORT INFORMATION
  Report Type: Spontaneous
  Country: US (occurrence: US)
  Receive Date: 20180518
  Receipt Date: 20180518
  Transmission Date: 20180711
  Serious: Yes (Hospitalization)
  Sender: FDA-Public Use
  Company Number: US-AMGEN-USASP2018065974

PATIENT
  Age: 93 Year
  Sex: Male
  Weight: 88.89 kg

DRUGS (1)
  1. PROCRIT [Suspect]
     Active Substance: ERYTHROPOIETIN
     Indication: NEPHROGENIC ANAEMIA
     Dosage: 20,000 U/ML, AS NECESSARY
     Route: 065
     Dates: start: 2018

REACTIONS (4)
  - Asthenia [Unknown]
  - Drug dose omission [Unknown]
  - Product storage error [Unknown]
  - Drug effect decreased [Unknown]

NARRATIVE: CASE EVENT DATE: 2018
